FAERS Safety Report 6616256-0 (Version None)
Quarter: 2010Q1

REPORT INFORMATION
  Report Type: 
  Country: None (occurrence: None)
  Receive Date: 20100305
  Receipt Date: 20100224
  Transmission Date: 20100710
  Serious: Yes (Other)
  Sender: FDA-Public Use
  Company Number: US-WATSON-2010-02310

PATIENT
  Age: 52 Year
  Sex: Female
  Weight: 49 kg

DRUGS (5)
  1. FENTANYL CITRATE [Suspect]
     Indication: ANALGESIC THERAPY
     Dosage: 100 MCG
     Route: 042
  2. ISOFLURANE (WATSON LABORATORIES) [Suspect]
     Indication: ANAESTHESIA
     Dosage: 1 %
     Route: 042
  3. MIDAZOLAM HCL [Suspect]
     Indication: ANAESTHESIA
     Dosage: 2 MG, SINGLE
     Route: 042
  4. PROPOFOL [Suspect]
     Indication: ANAESTHESIA
     Dosage: 100 MG, SINGLE
     Route: 042
  5. SUCCINYLCHOLINE CHLORIDE [Suspect]
     Indication: ANAESTHESIA
     Dosage: 40 MG, SINGLE
     Route: 042

REACTIONS (3)
  - DELAYED RECOVERY FROM ANAESTHESIA [None]
  - DEPRESSED LEVEL OF CONSCIOUSNESS [None]
  - DISSOCIATIVE DISORDER [None]
